FAERS Safety Report 11046803 (Version 4)
Quarter: 2015Q2

REPORT INFORMATION
  Report Type: Spontaneous
  Country: DE (occurrence: DE)
  Receive Date: 20150420
  Receipt Date: 20150624
  Transmission Date: 20150821
  Serious: Yes (Death, Life-Threatening, Hospitalization, Other)
  Sender: FDA-Public Use
  Company Number: DE-BRISTOL-MYERS SQUIBB COMPANY-BMS-2015-023181

PATIENT
  Age: 76 Year
  Sex: Male

DRUGS (11)
  1. SIMVASTATIN. [Concomitant]
     Active Substance: SIMVASTATIN
     Indication: HYPERCHOLESTEROLAEMIA
     Dosage: 20 MG, QD
     Route: 065
  2. MELPERONE [Concomitant]
     Active Substance: MELPERONE
     Indication: RESTLESSNESS
     Dosage: 25 MG, QD
     Route: 065
     Dates: start: 2013
  3. INSUMAN COMB [Concomitant]
     Active Substance: INSULIN NOS
     Indication: DIABETES MELLITUS
     Dosage: 12 IU, BID
     Route: 058
     Dates: start: 2013
  4. RAMIPRIL. [Concomitant]
     Active Substance: RAMIPRIL
     Indication: CARDIAC FAILURE
     Dosage: 2.5 MG, QD
     Route: 065
     Dates: start: 2013
  5. ELIQUIS [Suspect]
     Active Substance: APIXABAN
     Indication: CEREBROVASCULAR ACCIDENT PROPHYLAXIS
     Dosage: 5 MG, BID
     Route: 048
     Dates: start: 20150119
  6. ASPIRIN. [Suspect]
     Active Substance: ASPIRIN
     Indication: CORONARY ARTERY DISEASE
     Dosage: 100 MG, QD
     Route: 048
  7. CLOPIDOGREL [Suspect]
     Active Substance: CLOPIDOGREL BISULFATE
     Indication: CORONARY ARTERY DISEASE
     Dosage: 75 MG, QD
     Route: 048
     Dates: start: 20150119
  8. ASPIRIN. [Suspect]
     Active Substance: ASPIRIN
     Indication: ACUTE MYOCARDIAL INFARCTION
  9. CLOPIDOGREL [Suspect]
     Active Substance: CLOPIDOGREL BISULFATE
     Indication: ACUTE MYOCARDIAL INFARCTION
  10. RAMIPRIL. [Concomitant]
     Active Substance: RAMIPRIL
     Indication: HYPERTENSION
  11. HUMINSULIN [Concomitant]
     Indication: DIABETES MELLITUS
     Dosage: 15 IU, QD
     Route: 058
     Dates: start: 2013

REACTIONS (4)
  - Renal failure [Not Recovered/Not Resolved]
  - Septic shock [Fatal]
  - Gastrointestinal haemorrhage [Fatal]
  - Gastroenteritis norovirus [Unknown]

NARRATIVE: CASE EVENT DATE: 201502
